FAERS Safety Report 5425658-X (Version None)
Quarter: 2007Q3

REPORT INFORMATION
  Report Type: 
  Country: None (occurrence: None)
  Receive Date: 20070824
  Receipt Date: 20070815
  Transmission Date: 20080115
  Serious: Yes (Other)
  Sender: FDA-Public Use
  Company Number: US-PFIZER INC-2007068637

PATIENT
  Sex: Female
  Weight: 87.727 kg

DRUGS (9)
  1. CHANTIX [Suspect]
     Indication: SMOKING CESSATION THERAPY
  2. EFFEXOR [Concomitant]
  3. AMITRIPTYLINE HCL [Concomitant]
  4. BUSPAR [Concomitant]
  5. CLARITIN [Concomitant]
  6. LIPITOR [Concomitant]
  7. NYSTATIN [Concomitant]
  8. FLUCONAZOLE [Concomitant]
  9. EXCEDRIN (MIGRAINE) [Concomitant]
     Indication: MIGRAINE

REACTIONS (2)
  - CANDIDIASIS [None]
  - CHRONIC OBSTRUCTIVE PULMONARY DISEASE [None]
